FAERS Safety Report 15580453 (Version 3)
Quarter: 2018Q4

REPORT INFORMATION
  Report Type: Report from Study
  Country: CN (occurrence: CN)
  Receive Date: 20181102
  Receipt Date: 20181119
  Transmission Date: 20190205
  Serious: Yes (Hospitalization, Other)
  Sender: FDA-Public Use
  Company Number: CN-ASTRAZENECA-2018SF36652

PATIENT
  Age: 45 Year
  Sex: Female

DRUGS (1)
  1. BYETTA [Suspect]
     Active Substance: EXENATIDE
     Indication: DIABETES MELLITUS
     Route: 058
     Dates: start: 20180903

REACTIONS (4)
  - Eye injury [Unknown]
  - Hypertension [Recovered/Resolved]
  - Blood glucose increased [Recovered/Resolved]
  - Epistaxis [Recovered/Resolved]
